FAERS Safety Report 14433511 (Version 1)
Quarter: 2018Q1

REPORT INFORMATION
  Report Type: Spontaneous
  Country: US (occurrence: US)
  Receive Date: 20180124
  Receipt Date: 20180124
  Transmission Date: 20180509
  Serious: No
  Sender: FDA-Public Use
  Company Number: US-PCCINC-T201702565

PATIENT

DRUGS (13)
  1. RELISTOR [Concomitant]
     Active Substance: METHYLNALTREXONE BROMIDE
  2. GABLOFEN [Suspect]
     Active Substance: BACLOFEN
     Dosage: 200 ?G, QD
     Route: 037
     Dates: start: 20170410, end: 20170420
  3. XANAX [Concomitant]
     Active Substance: ALPRAZOLAM
     Dosage: UNK
     Route: 065
  4. TRIMIX (ALPROSTADIL\PAPAVERINE\PHENTOLAMINE) [Concomitant]
     Active Substance: ALPROSTADIL\PAPAVERINE\PHENTOLAMINE
  5. GABLOFEN [Suspect]
     Active Substance: BACLOFEN
     Dosage: 350 ?G, QD
     Route: 037
     Dates: start: 20170421
  6. FENTANYL. [Concomitant]
     Active Substance: FENTANYL
     Dosage: UNK
     Route: 065
  7. DILAUDID [Concomitant]
     Active Substance: HYDROMORPHONE HYDROCHLORIDE
  8. GABLOFEN [Suspect]
     Active Substance: BACLOFEN
     Dosage: 100 MCG/ML, UNK
     Route: 037
  9. GABLOFEN [Concomitant]
     Active Substance: BACLOFEN
     Dosage: 300 ?G, QD
     Route: 037
     Dates: end: 20170409
  10. HALDOL [Concomitant]
     Active Substance: HALOPERIDOL
  11. BACLOFEN. [Concomitant]
     Active Substance: BACLOFEN
     Dosage: UNK
     Route: 048
  12. TRENTAL [Concomitant]
     Active Substance: PENTOXIFYLLINE
  13. GABLOFEN [Suspect]
     Active Substance: BACLOFEN
     Dosage: 75 MG, BOLUS
     Route: 037
     Dates: start: 20170427

REACTIONS (4)
  - Muscle spasticity [Unknown]
  - Device issue [Unknown]
  - Limb discomfort [Recovering/Resolving]
  - Muscular weakness [Recovering/Resolving]

NARRATIVE: CASE EVENT DATE: 20170421
